FAERS Safety Report 7094724-8 (Version None)
Quarter: 2010Q4

REPORT INFORMATION
  Report Type: 
  Country: None (occurrence: None)
  Receive Date: 20101110
  Receipt Date: 20080813
  Transmission Date: 20110411
  Serious: No
  Sender: FDA-Public Use
  Company Number: US-KINGPHARMUSA00001-K200800958

PATIENT
  Sex: Female
  Weight: 57.143 kg

DRUGS (8)
  1. SKELAXIN [Suspect]
     Indication: HEADACHE
     Dosage: 800 MG, EVERY 8 HOURS
     Route: 048
     Dates: start: 20080812
  2. LISINOPRIL [Concomitant]
     Indication: HYPERTENSION
     Dosage: 20 MG, BID
  3. COREG [Concomitant]
     Indication: HYPERTENSION
     Dosage: 25 MG, BID
  4. PRILOSEC [Concomitant]
     Indication: ABDOMINAL DISCOMFORT
     Dosage: UNK, QD
  5. SYNTHROID [Concomitant]
     Indication: THYROID DISORDER
     Dosage: 75 MCG, QD
  6. ASPIRIN [Concomitant]
     Indication: PROPHYLAXIS
     Dosage: 81 MG, QD
  7. DEMECOLCINE [Concomitant]
     Indication: HYPONATRAEMIC SYNDROME
     Dosage: UNK, QD
  8. XANAX [Concomitant]
     Indication: ABDOMINAL DISCOMFORT
     Dosage: UNK, PRN

REACTIONS (2)
  - DRUG EFFECT DECREASED [None]
  - NECK PAIN [None]
